FAERS Safety Report 5922956-8 (Version None)
Quarter: 2008Q4

REPORT INFORMATION
  Report Type: 
  Country: None (occurrence: None)
  Receive Date: 20081018
  Receipt Date: 20081007
  Transmission Date: 20090506
  Serious: Yes (Hospitalization, Other)
  Sender: FDA-Public Use
  Company Number: DE-PFIZER INC-2008029610

PATIENT
  Sex: Male
  Weight: 80.2 kg

DRUGS (4)
  1. LYRICA [Suspect]
     Indication: NEURALGIA
     Route: 048
     Dates: start: 20080312, end: 20080315
  2. ZOPICLONE [Concomitant]
  3. VALSARTAN [Concomitant]
  4. FENTANYL CITRATE [Concomitant]
     Route: 062

REACTIONS (6)
  - ALTERED STATE OF CONSCIOUSNESS [None]
  - ATAXIA [None]
  - COORDINATION ABNORMAL [None]
  - DIZZINESS [None]
  - SYNCOPE [None]
  - TREMOR [None]
